FAERS Safety Report 6774170-4 (Version None)
Quarter: 2010Q2

REPORT INFORMATION
  Report Type: 
  Country: None (occurrence: None)
  Receive Date: 20100617
  Receipt Date: 20100610
  Transmission Date: 20101027
  Serious: Yes (Hospitalization, Other)
  Sender: FDA-Public Use
  Company Number: US-JNJFOC-20100603759

PATIENT
  Sex: Female
  Weight: 73.94 kg

DRUGS (4)
  1. FENTANYL [Suspect]
     Indication: PAIN
     Route: 062
  2. FENTANYL [Suspect]
     Route: 062
  3. FENTANYL [Suspect]
     Route: 062
  4. VICODIN [Concomitant]
     Indication: PAIN
     Dosage: 7.5/500MG, 100 PER MONTH
     Route: 048

REACTIONS (3)
  - GLAUCOMA [None]
  - OSTEOMYELITIS [None]
  - URINARY TRACT INFECTION [None]
